FAERS Safety Report 8112024-1 (Version None)
Quarter: 2012Q1

REPORT INFORMATION
  Report Type: 
  Country: None (occurrence: None)
  Receive Date: 20120203
  Receipt Date: 20120203
  Transmission Date: 20120608
  Serious: Yes (Other)
  Sender: FDA-Public Use
  Company Number: SG-BAYER-2012-010832

PATIENT
  Age: 60 Year
  Sex: Female

DRUGS (1)
  1. NIFEDIPINE [Suspect]

REACTIONS (2)
  - GASTROINTESTINAL DISORDER [None]
  - ABDOMINAL DISTENSION [None]
